APPROVED DRUG PRODUCT: DEFERASIROX
Active Ingredient: DEFERASIROX
Strength: 180MG
Dosage Form/Route: TABLET;ORAL
Application: A208697 | Product #002 | TE Code: AB
Applicant: ACTAVIS ELIZABETH LLC
Approved: Dec 13, 2019 | RLD: No | RS: No | Type: RX